FAERS Safety Report 13954162 (Version 1)
Quarter: 2017Q3

REPORT INFORMATION
  Report Type: Spontaneous
  Country: US (occurrence: US)
  Receive Date: 20170911
  Receipt Date: 20170911
  Transmission Date: 20171128
  Serious: No
  Sender: FDA-Public Use
  Company Number: US-LUPIN PHARMACEUTICALS INC.-2017-02010

PATIENT
  Sex: Female

DRUGS (1)
  1. MELOXICAM TABLETS USP, 15 MG [Suspect]
     Active Substance: MELOXICAM
     Indication: PRODUCT USED FOR UNKNOWN INDICATION
     Dosage: UNK
     Route: 065

REACTIONS (3)
  - Irritable bowel syndrome [Unknown]
  - Rash [Unknown]
  - Pruritus [Unknown]
